FAERS Safety Report 25631837 (Version 1)
Quarter: 2025Q3

REPORT INFORMATION
  Report Type: Spontaneous
  Country: US (occurrence: US)
  Receive Date: 20250801
  Receipt Date: 20250801
  Transmission Date: 20251020
  Serious: No
  Sender: ROCHE
  Company Number: US-ROCHE-10000351343

PATIENT
  Sex: Female

DRUGS (3)
  1. XOLAIR PFS [Suspect]
     Active Substance: OMALIZUMAB
     Indication: Urticaria
     Dosage: STRENGTH:300MG/2ML
     Route: 058
     Dates: start: 202507
  2. XOLAIR PFS [Suspect]
     Active Substance: OMALIZUMAB
  3. CAMZYOS [Concomitant]
     Active Substance: MAVACAMTEN

REACTIONS (3)
  - Weight increased [Unknown]
  - Pruritus [Unknown]
  - Mood altered [Unknown]
